FAERS Safety Report 10309876 (Version 2)
Quarter: 2014Q3

REPORT INFORMATION
  Report Type: Spontaneous
  Country: US (occurrence: US)
  Receive Date: 20140717
  Receipt Date: 20140819
  Transmission Date: 20150326
  Serious: No
  Sender: FDA-Public Use
  Company Number: US-SHIRE-US201404020

PATIENT
  Sex: Male
  Weight: 78.91 kg

DRUGS (3)
  1. VYVANSE [Suspect]
     Active Substance: LISDEXAMFETAMINE DIMESYLATE
     Indication: ATTENTION DEFICIT/HYPERACTIVITY DISORDER
     Dosage: 70 MG, OTHER (USED 60 PERCENT OF CAPSULE CONTENTS IN AM AND 40 PERCENT OF CAPSULE CONTENTS IN PM)
     Route: 048
     Dates: start: 2012
  2. TRAZODONE [Concomitant]
     Active Substance: TRAZODONE HYDROCHLORIDE
     Indication: SLEEP DISORDER
     Dosage: UNK, 1X/DAY:QD
     Route: 048
     Dates: start: 2012
  3. KLONOPIN [Concomitant]
     Active Substance: CLONAZEPAM
     Indication: ILL-DEFINED DISORDER
     Dosage: UNK, OTHER (HALF TABLET IN AM, AFTERNOON AND ONE TABLET IN EVENING)
     Route: 048
     Dates: start: 2012

REACTIONS (4)
  - Incorrect dose administered [Not Recovered/Not Resolved]
  - Inappropriate schedule of drug administration [Not Recovered/Not Resolved]
  - No adverse event [Not Recovered/Not Resolved]
  - Product quality issue [Unknown]

NARRATIVE: CASE EVENT DATE: 2012
